FAERS Safety Report 9967332 (Version 2)
Quarter: 2014Q1

REPORT INFORMATION
  Report Type: Report from Study
  Country: US (occurrence: US)
  Receive Date: 20140305
  Receipt Date: 20140305
  Transmission Date: 20141002
  Serious: No
  Sender: FDA-Public Use
  Company Number: US-ABBVIE-13P-163-1118746-00

PATIENT
  Age: 62 Year
  Sex: Female

DRUGS (14)
  1. HUMIRA [Suspect]
     Indication: CROHN^S DISEASE
     Route: 058
     Dates: start: 2012
  2. HUMIRA [Suspect]
     Route: 058
     Dates: start: 20130703, end: 20130703
  3. HUMIRA [Suspect]
     Route: 058
     Dates: start: 201307
  4. HUMIRA [Suspect]
     Route: 058
     Dates: start: 20130619
  5. PREDNISONE [Suspect]
     Indication: PRODUCT USED FOR UNKNOWN INDICATION
     Dosage: TO TAPER DOWN 2.5 MG PER WEEK STARTING 13 JUL 2013
  6. PREDNISONE [Suspect]
  7. PREDNISONE [Suspect]
  8. DILTIAZEM [Concomitant]
     Indication: HYPERTENSION
     Dosage: EVERY MORNING
     Route: 048
  9. NASONEX [Concomitant]
     Indication: ALLERGIC SINUSITIS
     Dosage: 2 SPRAYS EVERY MORNING
     Route: 045
  10. NEBULIZER TREATMENTS [Concomitant]
     Indication: ASTHMA
  11. IMODIUM [Concomitant]
     Indication: CROHN^S DISEASE
  12. TYLENOL [Concomitant]
     Indication: HEADACHE
  13. TYLENOL [Concomitant]
     Indication: PAIN
  14. MICARDIS [Concomitant]
     Indication: HYPERTENSION

REACTIONS (32)
  - Fatigue [Not Recovered/Not Resolved]
  - Oedema peripheral [Not Recovered/Not Resolved]
  - Rash macular [Not Recovered/Not Resolved]
  - White blood cell count increased [Unknown]
  - Injection site haemorrhage [Unknown]
  - Sinus headache [Recovering/Resolving]
  - Rash [Not Recovered/Not Resolved]
  - Rash [Not Recovered/Not Resolved]
  - Device malfunction [Unknown]
  - Incorrect dose administered [Unknown]
  - Stress [Unknown]
  - Gastrointestinal disorder [Unknown]
  - Abdominal pain upper [Unknown]
  - Diarrhoea haemorrhagic [Not Recovered/Not Resolved]
  - Injection site haemorrhage [Not Recovered/Not Resolved]
  - Rash erythematous [Not Recovered/Not Resolved]
  - Injection site pruritus [Not Recovered/Not Resolved]
  - Injection site erythema [Not Recovered/Not Resolved]
  - Drug ineffective [Not Recovered/Not Resolved]
  - Crohn^s disease [Not Recovered/Not Resolved]
  - Pain [Not Recovered/Not Resolved]
  - Musculoskeletal stiffness [Not Recovered/Not Resolved]
  - Arthralgia [Not Recovered/Not Resolved]
  - Pain in extremity [Not Recovered/Not Resolved]
  - Rash pruritic [Not Recovered/Not Resolved]
  - Hypersensitivity [Not Recovered/Not Resolved]
  - Flatulence [Not Recovered/Not Resolved]
  - Abdominal distension [Not Recovered/Not Resolved]
  - Back pain [Unknown]
  - Joint crepitation [Unknown]
  - Vitamin D decreased [Unknown]
  - Blood potassium decreased [Unknown]
